FAERS Safety Report 7583208-6 (Version None)
Quarter: 2011Q2

REPORT INFORMATION
  Report Type: 
  Country: None (occurrence: None)
  Receive Date: 20110630
  Receipt Date: 20110627
  Transmission Date: 20111010
  Serious: Yes (Hospitalization)
  Sender: FDA-Public Use
  Company Number: AU-SANOFI-AVENTIS-2011SA040552

PATIENT
  Age: 81 Year
  Sex: Male
  Weight: 71 kg

DRUGS (14)
  1. ATORVASTATIN [Concomitant]
  2. LEUPROLIDE ACETATE [Concomitant]
  3. FERROUS SULFATE TAB [Concomitant]
  4. CABAZITAXEL [Suspect]
     Route: 042
     Dates: start: 20110615, end: 20110615
  5. PLAVIX [Concomitant]
  6. PANTOPRAZOLE [Concomitant]
  7. ISORDIL [Concomitant]
     Route: 060
  8. NITROLINGUAL [Concomitant]
  9. MAXOLON [Concomitant]
  10. ATENOLOL [Concomitant]
  11. CABAZITAXEL [Suspect]
     Indication: PROSTATE CANCER
     Route: 042
     Dates: start: 20110413, end: 20110413
  12. ZOMETA [Concomitant]
  13. PREDNISOLONE [Suspect]
     Indication: PROSTATE CANCER
     Route: 048
     Dates: start: 20110413
  14. ASPIRIN [Concomitant]

REACTIONS (2)
  - ANAEMIA [None]
  - SYNCOPE [None]
